FAERS Safety Report 12450816 (Version 1)
Quarter: 2016Q2

REPORT INFORMATION
  Report Type: Spontaneous
  Country: US (occurrence: US)
  Receive Date: 20160609
  Receipt Date: 20160609
  Transmission Date: 20160815
  Serious: Yes (Other)
  Sender: FDA-Public Use
  Company Number: US-BAYER-2016-108076

PATIENT
  Age: 68 Year
  Sex: Female
  Weight: 69.84 kg

DRUGS (7)
  1. COLACE [Concomitant]
     Active Substance: DOCUSATE SODIUM
  2. XANAX [Concomitant]
     Active Substance: ALPRAZOLAM
  3. MIRALAX [Suspect]
     Active Substance: POLYETHYLENE GLYCOL 3350
     Indication: CONSTIPATION
     Dosage: 1 DF, QD
     Route: 048
  4. GAS-X [Concomitant]
     Active Substance: DIMETHICONE
  5. PREVACID [Concomitant]
     Active Substance: LANSOPRAZOLE
  6. EQUATE [Concomitant]
     Active Substance: UNSPECIFIED INGREDIENT
  7. LIPITOR [Concomitant]
     Active Substance: ATORVASTATIN CALCIUM

REACTIONS (6)
  - Irritability [None]
  - Drug dependence [None]
  - Abdominal pain upper [None]
  - Weight decreased [None]
  - Product use issue [None]
  - Fatigue [None]
